FAERS Safety Report 5827406-8 (Version None)
Quarter: 2008Q3

REPORT INFORMATION
  Report Type: 
  Country: None (occurrence: None)
  Receive Date: 20080730
  Receipt Date: 20080721
  Transmission Date: 20090109
  Serious: Yes (Hospitalization)
  Sender: FDA-Public Use
  Company Number: US-TEVA-174792USA

PATIENT
  Age: 55 Year
  Sex: Female

DRUGS (1)
  1. ONXOL [Suspect]
     Indication: BREAST CANCER
     Route: 042

REACTIONS (1)
  - SICKLE CELL ANAEMIA WITH CRISIS [None]
